FAERS Safety Report 5133942-2 (Version None)
Quarter: 2006Q4

REPORT INFORMATION
  Report Type: 
  Country: None (occurrence: None)
  Receive Date: 20061023
  Receipt Date: 20061023
  Transmission Date: 20070319
  Serious: Yes (Life-Threatening, Hospitalization, Other)
  Sender: FDA-Public Use
  Company Number: None

PATIENT
  Age: 40 Year
  Sex: Female
  Weight: 69.4003 kg

DRUGS (1)
  1. BACTRIM [Suspect]
     Indication: SINUSITIS
     Dates: start: 20010524, end: 20010611

REACTIONS (5)
  - DRUG HYPERSENSITIVITY [None]
  - FLUID RETENTION [None]
  - HEPATITIS [None]
  - HEPATOCELLULAR DAMAGE [None]
  - STEVENS-JOHNSON SYNDROME [None]
